FAERS Safety Report 6816226-3 (Version None)
Quarter: 2010Q3

REPORT INFORMATION
  Report Type: 
  Country: None (occurrence: None)
  Receive Date: 20100701
  Receipt Date: 20100701
  Transmission Date: 20110219
  Serious: No
  Sender: FDA-Public Use
  Company Number: None

PATIENT
  Sex: Female
  Weight: 67.586 kg

DRUGS (1)
  1. NEURONTIN [Suspect]
     Indication: SYRINGOMYELIA
     Dosage: 300MG 7 TABS QD ORAL
     Route: 048

REACTIONS (1)
  - DRUG INEFFECTIVE [None]
